FAERS Safety Report 8956201 (Version 2)
Quarter: 2012Q4

REPORT INFORMATION
  Report Type: 
  Country: US (occurrence: US)
  Receive Date: 20121210
  Receipt Date: 20121218
  Transmission Date: 20130627
  Serious: Yes (Disabling, Other)
  Sender: FDA-Public Use
  Company Number: US-PFIZER INC-2012309623

PATIENT
  Age: 62 Year
  Sex: Female
  Weight: 42.63 kg

DRUGS (1)
  1. ZOLOFT [Suspect]
     Indication: DEPRESSION
     Dosage: UNK

REACTIONS (4)
  - Abdominal neoplasm [Unknown]
  - Nerve injury [Unknown]
  - Constipation [Recovered/Resolved]
  - Drug ineffective [Unknown]
